FAERS Safety Report 14120850 (Version 1)
Quarter: 2017Q4

REPORT INFORMATION
  Report Type: Spontaneous
  Country: BR (occurrence: BR)
  Receive Date: 20171024
  Receipt Date: 20171024
  Transmission Date: 20180321
  Serious: Yes (Hospitalization, Other)
  Sender: FDA-Public Use
  Company Number: BR-BIOMARINP-001265

PATIENT
  Sex: Male
  Weight: 14.3 kg

DRUGS (1)
  1. NAGLAZYME [Suspect]
     Active Substance: GALSULFASE
     Indication: MUCOPOLYSACCHARIDOSIS VI
     Dosage: 15MG,QW
     Route: 042
     Dates: start: 20081114

REACTIONS (2)
  - Neurogenic bladder [Unknown]
  - Spinal cord compression [Recovered/Resolved]

NARRATIVE: CASE EVENT DATE: 2010
